FAERS Safety Report 5495797-6 (Version None)
Quarter: 2007Q4

REPORT INFORMATION
  Report Type: 
  Country: None (occurrence: None)
  Receive Date: 20071025
  Receipt Date: 20061109
  Transmission Date: 20080405
  Serious: No
  Sender: FDA-Public Use
  Company Number: A0624648A

PATIENT

DRUGS (1)
  1. ADVAIR DISKUS 100/50 [Suspect]
     Dosage: 2PUFF SINGLE DOSE
     Route: 055
     Dates: start: 20061004, end: 20061004

REACTIONS (1)
  - RASH ERYTHEMATOUS [None]
